FAERS Safety Report 11218858 (Version 2)
Quarter: 2017Q1

REPORT INFORMATION
  Report Type: Spontaneous
  Country: US (occurrence: US)
  Receive Date: 20150625
  Receipt Date: 20170307
  Transmission Date: 20170428
  Serious: Yes (Hospitalization, Other)
  Sender: FDA-Public Use
  Company Number: US-ELI_LILLY_AND_COMPANY-US201506006777

PATIENT
  Sex: Male
  Weight: 91 kg

DRUGS (6)
  1. MARIJUANA [Concomitant]
     Active Substance: CANNABIS SATIVA SUBSP. INDICA TOP
     Indication: PRODUCT USED FOR UNKNOWN INDICATION
  2. CYMBALTA [Suspect]
     Active Substance: DULOXETINE HYDROCHLORIDE
     Indication: PAIN
     Dosage: UNK UNK, UNKNOWN
     Route: 048
     Dates: start: 200701
  3. CYMBALTA [Suspect]
     Active Substance: DULOXETINE HYDROCHLORIDE
     Dosage: 60 MG, QD
     Route: 048
  4. CYMBALTA [Suspect]
     Active Substance: DULOXETINE HYDROCHLORIDE
     Dosage: 30 MG, QD
     Route: 048
     Dates: end: 201302
  5. CYMBALTA [Suspect]
     Active Substance: DULOXETINE HYDROCHLORIDE
     Indication: DEPRESSION
     Dosage: 60 MG, BID
     Route: 048
  6. CYMBALTA [Suspect]
     Active Substance: DULOXETINE HYDROCHLORIDE
     Dosage: 30 MG, BID
     Route: 048
     Dates: start: 201301

REACTIONS (23)
  - Nightmare [Unknown]
  - Anger [Unknown]
  - Sensory disturbance [Unknown]
  - Drug withdrawal syndrome [Unknown]
  - Tinnitus [Unknown]
  - Agitation [Unknown]
  - Fatigue [Unknown]
  - Headache [Unknown]
  - Lethargy [Unknown]
  - Disturbance in attention [Unknown]
  - Affect lability [Unknown]
  - Irritability [Unknown]
  - Mania [Unknown]
  - Suicide attempt [Unknown]
  - Vertigo [Unknown]
  - Hypomania [Unknown]
  - Confusional state [Unknown]
  - Insomnia [Unknown]
  - Mood swings [Unknown]
  - Suicidal ideation [Unknown]
  - Paraesthesia [Unknown]
  - Anxiety [Unknown]
  - Dizziness [Unknown]
